FAERS Safety Report 10031693 (Version 1)
Quarter: 2014Q1

REPORT INFORMATION
  Report Type: Spontaneous
  Country: US (occurrence: US)
  Receive Date: 20140324
  Receipt Date: 20140324
  Transmission Date: 20141002
  Serious: No
  Sender: FDA-Public Use
  Company Number: US-PFIZER INC-2014083316

PATIENT
  Age: 30 Year
  Sex: Male
  Weight: 72.6 kg

DRUGS (4)
  1. METHYLPREDNISOLONE [Suspect]
     Indication: SWELLING
     Dosage: 24 MG (6 TABLETS OF 4MG), UNK
     Dates: start: 20140316
  2. METHYLPREDNISOLONE [Suspect]
     Dosage: TITRATED TO AN UNKNOWN DOSE AND FREQUENCY
  3. ALLEGRA [Concomitant]
     Indication: HYPERSENSITIVITY
     Dosage: UNK
  4. VENTOLIN HFA [Concomitant]
     Indication: ASTHMA
     Dosage: UNK, AS NEEDED
     Route: 055

REACTIONS (3)
  - Drug dose omission [Unknown]
  - Blood alcohol increased [Unknown]
  - Blood glucose increased [Unknown]
